FAERS Safety Report 5386814-2 (Version None)
Quarter: 2007Q3

REPORT INFORMATION
  Report Type: 
  Country: None (occurrence: None)
  Receive Date: 20070713
  Receipt Date: 20070710
  Transmission Date: 20080115
  Serious: Yes (Death)
  Sender: FDA-Public Use
  Company Number: IN-GENENTECH-244376

PATIENT
  Age: 70 Year
  Sex: Male

DRUGS (3)
  1. ACTIVASE [Suspect]
     Indication: PULMONARY EMBOLISM
     Dosage: 10 MG, UNK
     Route: 040
     Dates: start: 20070601
  2. ACTIVASE [Suspect]
     Dosage: 90 MG, UNK
     Route: 042
     Dates: start: 20070601
  3. HEPARIN [Concomitant]
     Indication: PULMONARY EMBOLISM
     Dates: start: 20070601

REACTIONS (1)
  - DEATH [None]
